FAERS Safety Report 6012027-7 (Version None)
Quarter: 2008Q4

REPORT INFORMATION
  Report Type: 
  Country: None (occurrence: None)
  Receive Date: 20081218
  Receipt Date: 20081029
  Transmission Date: 20090506
  Serious: No
  Sender: FDA-Public Use
  Company Number: US-ASTRAZENECA-2008UW24207

PATIENT
  Age: 57 Year
  Sex: Male
  Weight: 79.4 kg

DRUGS (5)
  1. CRESTOR [Suspect]
     Indication: BLOOD CHOLESTEROL
     Route: 048
     Dates: start: 20081017
  2. CRESTOR [Suspect]
     Indication: PROPHYLAXIS
     Route: 048
     Dates: start: 20081017
  3. AVAPRO [Concomitant]
  4. NEXIUM [Concomitant]
     Route: 048
  5. ASACOL [Concomitant]

REACTIONS (2)
  - ARTHRALGIA [None]
  - FLATULENCE [None]
